FAERS Safety Report 5209927-4 (Version None)
Quarter: 2006Q4

REPORT INFORMATION
  Report Type: 
  Country: None (occurrence: None)
  Receive Date: 20061128
  Receipt Date: 20060323
  Transmission Date: 20070319
  Serious: Yes (Other)
  Sender: FDA-Public Use
  Company Number: 2006037248

PATIENT
  Age: 74 Year
  Sex: Female
  Weight: 61.2356 kg

DRUGS (11)
  1. TIKOSYN [Suspect]
     Indication: ATRIAL FIBRILLATION
     Dosage: 500 MCG (250 MCG, 2 IN 1 D)
     Dates: start: 20050922
  2. NORVASC [Concomitant]
  3. LIPITOR [Concomitant]
  4. FUROSEMIDE [Concomitant]
  5. POTASSIUM CHLORIDE [Concomitant]
  6. PREMARIN [Concomitant]
  7. RHINOCORT [Concomitant]
  8. CHLORHEXIDINE GLUCONATE [Concomitant]
  9. FLUOCINOLONE ACETONIDE (FLUOCINOLONE ACETONIDE) [Concomitant]
  10. MURO 128 (SODIUM CHLORIDE) [Concomitant]
  11. HYDROCHLOROTHIAZIDE [Concomitant]

REACTIONS (1)
  - TACHYARRHYTHMIA [None]
